FAERS Safety Report 17883699 (Version 3)
Quarter: 2020Q3

REPORT INFORMATION
  Report Type: Spontaneous
  Country: PT (occurrence: PT)
  Receive Date: 20200611
  Receipt Date: 20200828
  Transmission Date: 20201103
  Serious: Yes (Hospitalization, Disabling, Other)
  Sender: FDA-Public Use
  Company Number: PT-AUROBINDO-AUR-APL-2020-028391

PATIENT
  Age: 58 Year
  Sex: Female

DRUGS (1)
  1. ALENDRONIC ACID TABLETS [Suspect]
     Active Substance: ALENDRONIC ACID
     Indication: OSTEOPOROSIS
     Dosage: UNK, MEDICATED WITH ALENDRONATE FOR ABOUT EIGHT YEARS.
     Route: 065
     Dates: start: 2012

REACTIONS (6)
  - Incorrect product administration duration [Unknown]
  - Fall [Unknown]
  - Arthralgia [Unknown]
  - Atypical femur fracture [Unknown]
  - Femur fracture [Unknown]
  - Osteophyte fracture [Unknown]
